FAERS Safety Report 9289458 (Version 1)
Quarter: 2013Q2

REPORT INFORMATION
  Report Type: Spontaneous
  Country: US (occurrence: US)
  Receive Date: 20130514
  Receipt Date: 20130514
  Transmission Date: 20140414
  Serious: Yes (Other)
  Sender: FDA-Public Use
  Company Number: US-BIOMARINAP-US-2013-100798

PATIENT
  Age: 23 Year
  Sex: Female

DRUGS (1)
  1. NAGLAZYME [Suspect]
     Indication: MUCOPOLYSACCHARIDOSIS VI
     Dosage: 35 MG, QW
     Route: 041
     Dates: start: 20051206

REACTIONS (1)
  - Tracheostomy malfunction [Recovered/Resolved]
